FAERS Safety Report 17839797 (Version 1)
Quarter: 2020Q2

REPORT INFORMATION
  Report Type: Spontaneous
  Country: US (occurrence: US)
  Receive Date: 20200529
  Receipt Date: 20200529
  Transmission Date: 20200714
  Serious: Yes (Hospitalization, Other)
  Sender: FDA-Public Use
  Company Number: US-HTU-2019US019186

PATIENT
  Sex: Male

DRUGS (1)
  1. VALCHLOR [Suspect]
     Active Substance: MECHLORETHAMINE
     Indication: CUTANEOUS T-CELL LYMPHOMA
     Dosage: TOPICAL FILM, QD
     Route: 061

REACTIONS (7)
  - Renal disorder [Unknown]
  - Dialysis [Unknown]
  - Asthenia [Unknown]
  - Gait inability [Unknown]
  - Myocardial infarction [Unknown]
  - Intentional dose omission [Unknown]
  - Rash [Unknown]
